FAERS Safety Report 25533816 (Version 1)
Quarter: 2025Q3

REPORT INFORMATION
  Report Type: Spontaneous
  Country: US (occurrence: None)
  Receive Date: 20250708
  Receipt Date: 20250708
  Transmission Date: 20251021
  Serious: Yes (Hospitalization, Other)
  Sender: FDA-CTU
  Company Number: None

PATIENT
  Age: 48 Year
  Sex: Female
  Weight: 66.9 kg

DRUGS (2)
  1. DOXERCALCIFEROL [Suspect]
     Active Substance: DOXERCALCIFEROL
     Indication: Parathyroid disorder
     Dosage: OTHER FREQUENCY : 3 TIMES A WEEK;?
     Route: 040
     Dates: start: 20250628, end: 20250628
  2. VENOFER [Concomitant]
     Active Substance: IRON SUCROSE
     Dates: start: 20250624

REACTIONS (5)
  - Blood pressure increased [None]
  - Dialysis [None]
  - Unresponsive to stimuli [None]
  - Respiration abnormal [None]
  - Drug hypersensitivity [None]

NARRATIVE: CASE EVENT DATE: 20250628
